FAERS Safety Report 9792758 (Version 1)
Quarter: 2014Q1

REPORT INFORMATION
  Report Type: Spontaneous
  Country: US (occurrence: US)
  Receive Date: 20140102
  Receipt Date: 20140102
  Transmission Date: 20141002
  Serious: No
  Sender: FDA-Public Use
  Company Number: US-SANOFI-AVENTIS-2013SA034082

PATIENT
  Age: 37 Year
  Sex: Female
  Weight: 55 kg

DRUGS (3)
  1. AUBAGIO [Suspect]
     Indication: MULTIPLE SCLEROSIS
     Route: 048
     Dates: start: 20130305
  2. INTERFERON BETA [Concomitant]
     Indication: MULTIPLE SCLEROSIS
     Route: 065
     Dates: start: 201207, end: 201210
  3. COPAXONE [Concomitant]
     Indication: MULTIPLE SCLEROSIS
     Route: 065
     Dates: start: 201210, end: 201303

REACTIONS (3)
  - Abdominal pain upper [Recovered/Resolved]
  - Nausea [Recovered/Resolved]
  - Diarrhoea [Recovered/Resolved]
